FAERS Safety Report 8793745 (Version 1)
Quarter: 2012Q4

REPORT INFORMATION
  Report Type: 
  Country: IN (occurrence: IN)
  Receive Date: 20120917
  Receipt Date: 20120917
  Transmission Date: 20130627
  Serious: Yes (Death, Other)
  Sender: FDA-Public Use
  Company Number: PHHY2012IN080121

PATIENT
  Age: 58 Year
  Sex: Female

DRUGS (1)
  1. RASILEZ [Suspect]
     Indication: HYPERTENSION
     Dosage: 150 mg,

REACTIONS (4)
  - Cardiac failure [Fatal]
  - Cardiac disorder [Unknown]
  - Brain injury [Unknown]
  - Brain hypoxia [Unknown]
